FAERS Safety Report 7509513-7 (Version None)
Quarter: 2011Q2

REPORT INFORMATION
  Report Type: 
  Country: None (occurrence: None)
  Receive Date: 20110527
  Receipt Date: 20110524
  Transmission Date: 20111010
  Serious: Yes (Other)
  Sender: FDA-Public Use
  Company Number: IT-PFIZER INC-2011108688

PATIENT
  Age: 55 Year
  Sex: Male

DRUGS (3)
  1. SUTENT [Suspect]
     Indication: NEUROENDOCRINE TUMOUR
     Dosage: 37.5 MG, 1X/DAY
     Route: 048
     Dates: start: 20110516
  2. SUTENT [Suspect]
     Indication: METASTASES TO LIVER
  3. EUTIROX [Concomitant]
     Indication: THYROID DISORDER

REACTIONS (1)
  - HYPOGLYCAEMIA [None]
